FAERS Safety Report 6255319-9 (Version None)
Quarter: 2009Q3

REPORT INFORMATION
  Report Type: 
  Country: None (occurrence: None)
  Receive Date: 20090702
  Receipt Date: 20090623
  Transmission Date: 20100115
  Serious: Yes (Death, Other)
  Sender: FDA-Public Use
  Company Number: SE-PFIZER INC-2009231300

PATIENT
  Age: 86 Year

DRUGS (2)
  1. PHENYTOIN SODIUM AND PHENYTOIN [Suspect]
     Indication: EPILEPSY
     Dosage: 100 MG, 3X/DAY
  2. INSULIN [Concomitant]

REACTIONS (3)
  - ANTICONVULSANT DRUG LEVEL INCREASED [None]
  - DEATH [None]
  - DEMENTIA [None]
